FAERS Safety Report 6914718-X (Version None)
Quarter: 2010Q3

REPORT INFORMATION
  Report Type: 
  Country: None (occurrence: None)
  Receive Date: 20100804
  Receipt Date: 20100804
  Transmission Date: 20110219
  Serious: Yes (Hospitalization)
  Sender: FDA-Public Use
  Company Number: None

PATIENT
  Age: 68 Year
  Sex: Male

DRUGS (2)
  1. WARFARIN SODIUM [Suspect]
     Dosage: IV
     Route: 042
     Dates: start: 20090917, end: 20090917
  2. WARFARIN SODIUM [Suspect]
     Dosage: PO
     Route: 048
     Dates: start: 20010905

REACTIONS (3)
  - INTERNATIONAL NORMALISED RATIO ABNORMAL [None]
  - NAUSEA [None]
  - VOMITING [None]
